FAERS Safety Report 16660223 (Version 1)
Quarter: 2019Q3

REPORT INFORMATION
  Report Type: Spontaneous
  Country: US (occurrence: US)
  Receive Date: 20190619
  Receipt Date: 20190619
  Transmission Date: 20191004
  Serious: No
  Sender: FDA-Public Use
  Company Number: None

PATIENT
  Age: 68 Year
  Sex: Female

DRUGS (1)
  1. PROLIA [Suspect]
     Active Substance: DENOSUMAB
     Dates: start: 2018

REACTIONS (3)
  - Product prescribing issue [None]
  - Therapy cessation [None]
  - Insurance issue [None]

NARRATIVE: CASE EVENT DATE: 20190611
